FAERS Safety Report 8048658-2 (Version None)
Quarter: 2011Q4

REPORT INFORMATION
  Report Type: 
  Country: None (occurrence: None)
  Receive Date: 20111230
  Receipt Date: 20111221
  Transmission Date: 20120403
  Serious: Yes (Other)
  Sender: FDA-Public Use
  Company Number: 2011030632

PATIENT
  Age: 56 Year
  Sex: Female

DRUGS (6)
  1. PRIVIGEN [Suspect]
     Indication: SECONDARY IMMUNODEFICIENCY
     Dosage: 10 G, 3 X 100MG/ML INTRAVENOUS (NOT OTHERWISE SPECIFIED)
     Route: 042
     Dates: start: 20110715
  2. PRIVIGEN [Suspect]
     Indication: SECONDARY IMMUNODEFICIENCY
     Dosage: 10 G, 3 X 100MG/ML INTRAVENOUS (NOT OTHERWISE SPECIFIED)  : 10 G, 1 X 100MG/ML INTRAVENOUS (NOT OTHE
     Route: 042
     Dates: start: 20110804
  3. PRIVIGEN [Suspect]
     Indication: SECONDARY IMMUNODEFICIENCY
     Dosage: 10 G, 3 X 100MG/ML INTRAVENOUS (NOT OTHERWISE SPECIFIED)  : 10 G, 1 X 100MG/ML INTRAVENOUS (NOT OTHE
     Route: 042
     Dates: start: 20010929
  4. PRIVIGEN [Suspect]
     Indication: SECONDARY IMMUNODEFICIENCY
     Dosage: 10 G, 3 X 100MG/ML INTRAVENOUS (NOT OTHERWISE SPECIFIED)  : 10 G, 1 X 100MG/ML INTRAVENOUS (NOT OTHE
     Route: 042
     Dates: start: 20110909
  5. PRIVIGEN [Suspect]
     Indication: SECONDARY IMMUNODEFICIENCY
     Dosage: 10 G, 3 X 100MG/ML INTRAVENOUS (NOT OTHERWISE SPECIFIED)
     Route: 042
     Dates: start: 20111020
  6. PRIVIGEN [Suspect]
     Indication: SECONDARY IMMUNODEFICIENCY
     Dosage: 10 G, 3 X 100MG/ML INTRAVENOUS (NOT OTHERWISE SPECIFIED)
     Route: 042
     Dates: start: 20111114

REACTIONS (1)
  - ANTIBODY TEST POSITIVE [None]
